FAERS Safety Report 11108335 (Version 2)
Quarter: 2015Q4

REPORT INFORMATION
  Report Type: Report from Study
  Country: US (occurrence: US)
  Receive Date: 20150512
  Receipt Date: 20151008
  Transmission Date: 20160304
  Serious: Yes (Other)
  Sender: FDA-Public Use
  Company Number: PHEH2015US008006

PATIENT
  Sex: Female
  Weight: 75.28 kg

DRUGS (10)
  1. ACETAMINOPHEN W/HYDROCODONE [Concomitant]
     Active Substance: ACETAMINOPHEN\HYDROCODONE
     Indication: PRODUCT USED FOR UNKNOWN INDICATION
     Route: 065
  2. PLAQUENIL [Concomitant]
     Active Substance: HYDROXYCHLOROQUINE SULFATE
     Indication: PRODUCT USED FOR UNKNOWN INDICATION
     Route: 065
  3. METHOCARBAMOL. [Concomitant]
     Active Substance: METHOCARBAMOL
     Indication: PRODUCT USED FOR UNKNOWN INDICATION
     Route: 065
  4. GILENYA [Suspect]
     Active Substance: FINGOLIMOD HYDROCHLORIDE
     Indication: MULTIPLE SCLEROSIS
     Dosage: 0.5 MG, QD
     Route: 048
     Dates: start: 20130521
  5. TECFIDERA [Concomitant]
     Active Substance: DIMETHYL FUMARATE
     Indication: PRODUCT USED FOR UNKNOWN INDICATION
     Dosage: UNK
     Route: 065
  6. OMEPRAZOLE. [Concomitant]
     Active Substance: OMEPRAZOLE
     Indication: PRODUCT USED FOR UNKNOWN INDICATION
     Route: 065
  7. AMPYRA [Concomitant]
     Active Substance: DALFAMPRIDINE
     Indication: PRODUCT USED FOR UNKNOWN INDICATION
     Route: 065
  8. VITAMIN B12 [Concomitant]
     Active Substance: CYANOCOBALAMIN
     Indication: PRODUCT USED FOR UNKNOWN INDICATION
     Route: 065
  9. CALCIUM + VITAMIN D3 [Concomitant]
     Indication: PRODUCT USED FOR UNKNOWN INDICATION
     Route: 065
  10. MECLIZINE HCL [Concomitant]
     Active Substance: MECLIZINE HYDROCHLORIDE
     Indication: PRODUCT USED FOR UNKNOWN INDICATION
     Route: 065

REACTIONS (34)
  - Central nervous system lesion [Unknown]
  - Arthropathy [Unknown]
  - Tremor [Unknown]
  - Dizziness [Unknown]
  - Multiple sclerosis [Unknown]
  - Speech disorder [Recovering/Resolving]
  - Demyelination [Unknown]
  - Hyperreflexia [Unknown]
  - Leukopenia [Recovered/Resolved]
  - Optic atrophy [Unknown]
  - Fatigue [Unknown]
  - Pain [Unknown]
  - Gait disturbance [Unknown]
  - Back pain [Recovering/Resolving]
  - Vision blurred [Unknown]
  - Ataxia [Unknown]
  - JC virus test positive [Unknown]
  - Sensory loss [Unknown]
  - Decreased activity [Unknown]
  - Gait spastic [Unknown]
  - Intervertebral disc space narrowing [Unknown]
  - Balance disorder [Not Recovered/Not Resolved]
  - Muscle spasms [Unknown]
  - Hypoaesthesia [Recovering/Resolving]
  - Muscle spasticity [Not Recovered/Not Resolved]
  - Dysarthria [Unknown]
  - Vertigo [Recovering/Resolving]
  - Muscular weakness [Recovered/Resolved]
  - Burning sensation [Unknown]
  - Sensory disturbance [Unknown]
  - Cranial nerve disorder [Unknown]
  - Movement disorder [Recovering/Resolving]
  - Asthenia [Unknown]
  - Reflexes abnormal [Unknown]
